FAERS Safety Report 17868616 (Version 1)
Quarter: 2020Q2

REPORT INFORMATION
  Report Type: Spontaneous
  Country: CA (occurrence: CA)
  Receive Date: 20200606
  Receipt Date: 20200606
  Transmission Date: 20200714
  Serious: Yes (Death)
  Sender: FDA-Public Use
  Company Number: CA-ROCHE-2611941

PATIENT
  Age: 84 Year
  Sex: Female

DRUGS (3)
  1. INFLIXIMAB [Suspect]
     Active Substance: INFLIXIMAB
     Indication: MALIGNANT MELANOMA
     Route: 042
  2. PREDNISONE. [Suspect]
     Active Substance: PREDNISONE
     Indication: MALIGNANT MELANOMA
     Route: 042
  3. MYCOPHENOLATE MOFETIL. [Suspect]
     Active Substance: MYCOPHENOLATE MOFETIL
     Indication: MALIGNANT MELANOMA
     Route: 065

REACTIONS (4)
  - Fatigue [Fatal]
  - Off label use [Fatal]
  - Drug ineffective for unapproved indication [Fatal]
  - Myocarditis [Fatal]
